FAERS Safety Report 13806266 (Version 1)
Quarter: 2017Q3

REPORT INFORMATION
  Report Type: Spontaneous
  Country: US (occurrence: US)
  Receive Date: 20170728
  Receipt Date: 20170728
  Transmission Date: 20171127
  Serious: No
  Sender: FDA-Public Use
  Company Number: US-GILEAD-2017-0285404

PATIENT
  Age: 57 Year
  Sex: Male

DRUGS (4)
  1. LYRICA [Interacting]
     Active Substance: PREGABALIN
     Indication: FACET JOINT SYNDROME
  2. LYRICA [Interacting]
     Active Substance: PREGABALIN
     Indication: BACK PAIN
  3. LYRICA [Interacting]
     Active Substance: PREGABALIN
     Indication: CERVICAL RADICULOPATHY
     Dosage: 1 DF, BID
     Route: 048
     Dates: start: 20170629
  4. RANEXA [Suspect]
     Active Substance: RANOLAZINE
     Indication: PRODUCT USED FOR UNKNOWN INDICATION
     Route: 065

REACTIONS (4)
  - Potentiating drug interaction [Unknown]
  - Cervical radiculopathy [Unknown]
  - Back pain [Unknown]
  - Facet joint syndrome [Unknown]
